FAERS Safety Report 7387465-0 (Version None)
Quarter: 2011Q1

REPORT INFORMATION
  Report Type: 
  Country: None (occurrence: None)
  Receive Date: 20110331
  Receipt Date: 20110210
  Transmission Date: 20110831
  Serious: Yes (Hospitalization)
  Sender: FDA-Public Use
  Company Number: IE-MEDIMMUNE-MEDI-0012543

PATIENT
  Sex: Male
  Weight: 6.02 kg

DRUGS (9)
  1. KAPSOVIT [Concomitant]
  2. LACTULOSE [Concomitant]
  3. GLYCOPYROLATE [Concomitant]
  4. MELATONIN [Concomitant]
  5. LANSOPRAZOLE [Concomitant]
  6. SYNAGIS [Suspect]
     Route: 030
     Dates: start: 20101104, end: 20101104
  7. HYOSCINE HBR HYT [Concomitant]
  8. DIAZEPAM [Concomitant]
  9. BACLOFEN [Concomitant]

REACTIONS (3)
  - SKIN DISORDER [None]
  - EYE DISORDER [None]
  - MALAISE [None]
